FAERS Safety Report 7730117-5 (Version None)
Quarter: 2011Q3

REPORT INFORMATION
  Report Type: 
  Country: None (occurrence: None)
  Receive Date: 20110906
  Receipt Date: 20110829
  Transmission Date: 20111222
  Serious: Yes (Other)
  Sender: FDA-Public Use
  Company Number: PHHY2011AR77138

PATIENT
  Sex: Female

DRUGS (1)
  1. EXELON [Suspect]
     Dosage: UNK UKN, UNK
     Route: 062
     Dates: end: 20101001

REACTIONS (3)
  - HYPERSENSITIVITY [None]
  - RASH [None]
  - LOWER LIMB FRACTURE [None]
